FAERS Safety Report 9058656 (Version 1)
Quarter: 2013Q1

REPORT INFORMATION
  Report Type: Spontaneous
  Country: US (occurrence: US)
  Receive Date: 20130204
  Receipt Date: 20130204
  Transmission Date: 20140127
  Serious: No
  Sender: FDA-Public Use
  Company Number: US-GLAXOSMITHKLINE-A1000123A

PATIENT
  Age: 50 Year
  Sex: Female

DRUGS (3)
  1. HORIZANT [Suspect]
     Indication: PAIN IN EXTREMITY
     Dosage: 600MG PER DAY
     Route: 048
     Dates: start: 20121025
  2. METAXALONE [Concomitant]
  3. CARDIAZOL [Concomitant]

REACTIONS (8)
  - Drug dispensing error [Not Recovered/Not Resolved]
  - Dizziness [Unknown]
  - Joint stiffness [Unknown]
  - Dry mouth [Unknown]
  - Mood swings [Unknown]
  - Dizziness [Unknown]
  - Feeling abnormal [Unknown]
  - Local swelling [Unknown]
